FAERS Safety Report 4299002-8 (Version None)
Quarter: 2004Q1

REPORT INFORMATION
  Report Type: 
  Country: None (occurrence: None)
  Receive Date: 20040217
  Receipt Date: 20040204
  Transmission Date: 20041129
  Serious: Yes (Other)
  Sender: FDA-Public Use
  Company Number: TEST00303002734

PATIENT
  Age: 34 Year
  Sex: Male

DRUGS (3)
  1. TESTOSTERONE [Suspect]
     Indication: ANDROGEN REPLACEMENT THERAPY
     Dosage: SEE IMAGE
     Route: 062
     Dates: start: 20030101, end: 20030101
  2. TESTOSTERONE [Suspect]
     Indication: ANDROGEN REPLACEMENT THERAPY
     Dosage: SEE IMAGE
     Route: 062
     Dates: start: 20030501, end: 20030101
  3. TESTOSTERONE [Suspect]
     Indication: ANDROGEN REPLACEMENT THERAPY
     Dosage: SEE IMAGE
     Route: 062
     Dates: start: 20030801, end: 20030101

REACTIONS (2)
  - DIARRHOEA [None]
  - GASTRIC DISORDER [None]
